FAERS Safety Report 7402212-1 (Version None)
Quarter: 2011Q2

REPORT INFORMATION
  Report Type: 
  Country: None (occurrence: None)
  Receive Date: 20110408
  Receipt Date: 20110401
  Transmission Date: 20111010
  Serious: Yes (Hospitalization, Disabling)
  Sender: FDA-Public Use
  Company Number: US-ELI_LILLY_AND_COMPANY-US201104001093

PATIENT
  Sex: Female

DRUGS (4)
  1. SYMLIN [Concomitant]
     Dosage: UNK
  2. LEVEMIR [Concomitant]
     Dosage: UNK
  3. LANTUS [Concomitant]
     Dosage: UNK
  4. HUMALOG [Suspect]
     Indication: DIABETES MELLITUS
     Dosage: 40 U, QD

REACTIONS (2)
  - DRUG INEFFECTIVE [None]
  - BRAIN OPERATION [None]
